FAERS Safety Report 25343701 (Version 1)
Quarter: 2025Q2

REPORT INFORMATION
  Report Type: Spontaneous
  Country: US (occurrence: None)
  Receive Date: 20250521
  Receipt Date: 20250521
  Transmission Date: 20250717
  Serious: No
  Sender: FDA-CTU
  Company Number: None

PATIENT
  Age: 35 Year
  Sex: Female
  Weight: 65.25 kg

DRUGS (1)
  1. CETIRIZINE [Suspect]
     Active Substance: CETIRIZINE HYDROCHLORIDE
     Indication: Seasonal allergy

REACTIONS (6)
  - Urticaria [None]
  - Pruritus [None]
  - Urticaria [None]
  - Haemorrhage [None]
  - Scar [None]
  - Therapy cessation [None]

NARRATIVE: CASE EVENT DATE: 20230501
